FAERS Safety Report 4946491-9 (Version None)
Quarter: 2006Q1

REPORT INFORMATION
  Report Type: 
  Country: None (occurrence: None)
  Receive Date: 20060314
  Receipt Date: 20060228
  Transmission Date: 20060701
  Serious: Yes (Death)
  Sender: FDA-Public Use
  Company Number: USA-2006-0023692

PATIENT
  Age: 49 Year
  Sex: Female

DRUGS (6)
  1. OXYCONTIN [Suspect]
     Indication: CANCER PAIN
     Dosage: 80 MG, BID
     Dates: start: 20050425
  2. OXYCODONE HCL [Suspect]
     Indication: CANCER PAIN
     Dosage: 5 MG, SEE TEXT
     Dates: start: 20050425
  3. LASIX [Concomitant]
  4. AMBIEN [Concomitant]
  5. ALLEGRA (FEXOFENADINE HDYROCHLORIDE) [Concomitant]
  6. MAGNESIUM OXIDE (MAGNESIUM OXIDE) TABLET [Concomitant]

REACTIONS (2)
  - LUNG NEOPLASM MALIGNANT [None]
  - MALIGNANT NEOPLASM PROGRESSION [None]
